FAERS Safety Report 12537046 (Version 2)
Quarter: 2016Q3

REPORT INFORMATION
  Report Type: Spontaneous
  Country: US (occurrence: US)
  Receive Date: 20160707
  Receipt Date: 20160801
  Transmission Date: 20161109
  Serious: No
  Sender: FDA-Public Use
  Company Number: US-PFIZER INC-2016314302

PATIENT
  Age: 42 Year
  Sex: Male

DRUGS (2)
  1. XELJANZ [Suspect]
     Active Substance: TOFACITINIB CITRATE
     Indication: ALOPECIA
     Dosage: 10 MG, 2X/DAY
     Dates: start: 20151101
  2. XELJANZ [Suspect]
     Active Substance: TOFACITINIB CITRATE
     Indication: ECZEMA

REACTIONS (2)
  - Therapeutic response unexpected [Not Recovered/Not Resolved]
  - Product use issue [Not Recovered/Not Resolved]

NARRATIVE: CASE EVENT DATE: 20151101
